FAERS Safety Report 10742524 (Version 4)
Quarter: 2015Q4

REPORT INFORMATION
  Report Type: Report from Study
  Country: PL (occurrence: PL)
  Receive Date: 20150127
  Receipt Date: 20151012
  Transmission Date: 20160304
  Serious: Yes (Life-Threatening, Hospitalization)
  Sender: FDA-Public Use
  Company Number: PL-GILEAD-2015-0131821

PATIENT
  Age: 84 Year
  Sex: Male
  Weight: 91.5 kg

DRUGS (36)
  1. BENDAMUSTINE [Suspect]
     Active Substance: BENDAMUSTINE
     Dosage: 182 MG, CYCLICAL
     Route: 042
     Dates: start: 20141114, end: 20141114
  2. BENDAMUSTINE [Suspect]
     Active Substance: BENDAMUSTINE
     Dosage: 1 DF, UNK
     Route: 042
  3. RITUXIMAB [Suspect]
     Active Substance: RITUXIMAB
     Dosage: 935 MG, CYCLICAL
     Route: 042
     Dates: start: 20150305, end: 20150305
  4. CIPROBAY                           /00697201/ [Concomitant]
     Indication: HAEMATURIA
     Route: 048
     Dates: start: 20141227, end: 20141230
  5. BENDAMUSTINE [Suspect]
     Active Substance: BENDAMUSTINE
     Indication: CHRONIC LYMPHOCYTIC LEUKAEMIA
     Dosage: 182 MG, CYCLICAL
     Route: 042
     Dates: start: 20141113, end: 20141113
  6. BENDAMUSTINE [Suspect]
     Active Substance: BENDAMUSTINE
     Dosage: 182 MG, CYCLICAL
     Route: 042
     Dates: start: 20141211, end: 20141211
  7. BETO ZK [Concomitant]
     Active Substance: METOPROLOL SUCCINATE
     Indication: HYPERTENSION
     Route: 048
     Dates: start: 2004
  8. KARNIDIN [Concomitant]
     Indication: HYPERTENSION
     Route: 048
     Dates: start: 2004
  9. SPIRONOL [Concomitant]
     Active Substance: SPIRONOLACTONE
     Indication: HYPERTENSION
     Route: 048
     Dates: start: 20150109
  10. CIPROBAY                           /00697201/ [Concomitant]
     Indication: PYREXIA
  11. CLEMASTIN [Concomitant]
     Active Substance: CLEMASTINE
     Route: 042
     Dates: start: 20141211, end: 20141211
  12. IDELALISIB [Suspect]
     Active Substance: IDELALISIB
     Indication: CHRONIC LYMPHOCYTIC LEUKAEMIA
     Dosage: 150 MG, BID
     Route: 048
     Dates: start: 20141113, end: 20150201
  13. IDELALISIB [Suspect]
     Active Substance: IDELALISIB
     Dosage: 150 UNK, UNK
     Route: 048
     Dates: start: 20150305
  14. BENDAMUSTINE [Suspect]
     Active Substance: BENDAMUSTINE
     Dosage: 1 DF, UNK
     Route: 042
  15. BENDAMUSTINE [Suspect]
     Active Substance: BENDAMUSTINE
     Dosage: 1 DF, UNK
     Route: 042
  16. RITUXIMAB [Suspect]
     Active Substance: RITUXIMAB
     Indication: CHRONIC LYMPHOCYTIC LEUKAEMIA
     Dosage: 758 MG, CYCLICAL
     Route: 042
     Dates: start: 20141113, end: 20141113
  17. RITUXIMAB [Suspect]
     Active Substance: RITUXIMAB
     Dosage: 1010 MG, CYCLICAL
     Route: 042
     Dates: start: 20141211, end: 20141211
  18. RITUXIMAB [Suspect]
     Active Substance: RITUXIMAB
     Dosage: 935 MG, CYCLICAL
     Route: 042
     Dates: start: 20150402, end: 20150402
  19. ACENOCUMAROL [Concomitant]
     Active Substance: ACENOCOUMAROL
     Indication: ATRIAL FIBRILLATION
     Dosage: UNK
     Route: 048
     Dates: start: 2004, end: 20150305
  20. FUROSEMID                          /00032601/ [Concomitant]
     Active Substance: FUROSEMIDE
     Indication: HYPERTENSION
     Route: 048
     Dates: start: 2004
  21. ATROX [Concomitant]
     Indication: HYPERCHOLESTEROLAEMIA
     Route: 048
     Dates: start: 2004
  22. PIRAMIL [Concomitant]
     Indication: HYPERTENSION
     Route: 048
     Dates: start: 2004
  23. BENDAMUSTINE [Suspect]
     Active Substance: BENDAMUSTINE
     Dosage: 182 MG, CYCLICAL
     Route: 042
     Dates: start: 20141212, end: 20141212
  24. RITUXIMAB [Suspect]
     Active Substance: RITUXIMAB
     Dosage: 1 DF, UNK
     Route: 042
  25. RITUXIMAB [Suspect]
     Active Substance: RITUXIMAB
     Dosage: 935 MG, CYCLICAL
     Route: 042
     Dates: start: 20150526, end: 20150526
  26. HYDROXYZINUM [Concomitant]
     Active Substance: HYDROXYZINE HYDROCHLORIDE
     Indication: HYPERTENSION
     Route: 048
     Dates: start: 20150109, end: 20150120
  27. BENDAMUSTINE [Suspect]
     Active Substance: BENDAMUSTINE
     Dosage: 1 DF, UNK
     Route: 042
  28. CYCLONAMINE [Concomitant]
     Active Substance: ETHAMSYLATE
     Indication: PYREXIA
  29. BENDAMUSTINE [Suspect]
     Active Substance: BENDAMUSTINE
     Dosage: 1 DF, UNK
     Route: 042
  30. ONDANSETRON [Concomitant]
     Active Substance: ONDANSETRON
     Route: 042
     Dates: start: 20141211, end: 20141211
  31. CORHYDRON                          /00028602/ [Concomitant]
     Dosage: UNK
     Route: 042
     Dates: start: 20141211, end: 20141211
  32. CLEXANE [Concomitant]
     Active Substance: ENOXAPARIN SODIUM
     Indication: THROMBOSIS PROPHYLAXIS
  33. HYDROXYZINUM [Concomitant]
     Active Substance: HYDROXYZINE HYDROCHLORIDE
     Indication: INSOMNIA
  34. CYCLONAMINE [Concomitant]
     Active Substance: ETHAMSYLATE
     Indication: HAEMATURIA
     Route: 048
     Dates: start: 20141227, end: 20141230
  35. BENDAMUSTINE [Suspect]
     Active Substance: BENDAMUSTINE
     Dosage: 1 DF, UNK
     Route: 042
  36. CLEXANE [Concomitant]
     Active Substance: ENOXAPARIN SODIUM
     Indication: ATRIAL FIBRILLATION
     Route: 058
     Dates: start: 20150109, end: 20150120

REACTIONS (1)
  - Anaemia [Recovered/Resolved]

NARRATIVE: CASE EVENT DATE: 20150109
